FAERS Safety Report 6013822-0 (Version None)
Quarter: 2008Q4

REPORT INFORMATION
  Report Type: 
  Country: None (occurrence: None)
  Receive Date: 20081219
  Receipt Date: 20081209
  Transmission Date: 20090506
  Serious: Yes (Other)
  Sender: FDA-Public Use
  Company Number: US-PFIZER INC-2008155004

PATIENT
  Sex: Male
  Weight: 122.45 kg

DRUGS (6)
  1. ZYVOX [Suspect]
     Indication: INFECTION
     Dates: start: 20080601, end: 20080101
  2. LISINOPRIL [Concomitant]
     Dosage: UNK
  3. WARFARIN SODIUM [Concomitant]
  4. LASIX [Concomitant]
     Dosage: UNK
  5. CHOLESTEROL [Concomitant]
     Dosage: UNK
  6. CARDIAC THERAPY [Concomitant]
     Dosage: UNK

REACTIONS (2)
  - DRUG INEFFECTIVE [None]
  - GASTRIC OPERATION [None]
